FAERS Safety Report 7437497-9 (Version None)
Quarter: 2011Q2

REPORT INFORMATION
  Report Type: 
  Country: None (occurrence: None)
  Receive Date: 20110426
  Receipt Date: 20110418
  Transmission Date: 20111010
  Serious: Yes (Hospitalization, Other)
  Sender: FDA-Public Use
  Company Number: PHHY2011GB13284

PATIENT
  Age: 53 Year
  Sex: Female

DRUGS (3)
  1. QUETIAPINE [Concomitant]
     Indication: ILL-DEFINED DISORDER
  2. RISPERIDONE [Suspect]
     Dosage: UNK
     Dates: start: 20040101, end: 20060101
  3. RISPERIDONE [Suspect]
     Indication: PSYCHOTIC DISORDER
     Dosage: UNK
     Dates: start: 19970101, end: 20030101

REACTIONS (7)
  - DYSTONIA [None]
  - ASTHENOPIA [None]
  - MOVEMENT DISORDER [None]
  - HYPOAESTHESIA [None]
  - SUICIDE ATTEMPT [None]
  - SCIATICA [None]
  - PSYCHIATRIC SYMPTOM [None]
